FAERS Safety Report 7251916-2 (Version None)
Quarter: 2011Q1

REPORT INFORMATION
  Report Type: 
  Country: None (occurrence: None)
  Receive Date: 20110128
  Receipt Date: 20100126
  Transmission Date: 20110831
  Serious: No
  Sender: FDA-Public Use
  Company Number: US-ABBOTT-10P-163-0618526-00

PATIENT
  Sex: Female
  Weight: 67.192 kg

DRUGS (7)
  1. HUMIRA [Suspect]
     Dates: start: 20090801, end: 20090901
  2. FOLIC ACID [Concomitant]
     Indication: PSORIATIC ARTHROPATHY
  3. ALEVE [Concomitant]
     Indication: PSORIATIC ARTHROPATHY
  4. TYLENOL (CAPLET) [Concomitant]
     Indication: PSORIATIC ARTHROPATHY
  5. HUMIRA [Suspect]
     Indication: PSORIATIC ARTHROPATHY
     Dates: start: 20090801, end: 20090901
  6. HUMIRA [Suspect]
     Dates: start: 20090901
  7. METHOTREXATE [Concomitant]
     Indication: PSORIATIC ARTHROPATHY

REACTIONS (1)
  - MUSCULOSKELETAL STIFFNESS [None]
